FAERS Safety Report 14081711 (Version 1)
Quarter: 2017Q4

REPORT INFORMATION
  Report Type: Spontaneous
  Country: US (occurrence: US)
  Receive Date: 20171013
  Receipt Date: 20171013
  Transmission Date: 20180321
  Serious: Yes (Hospitalization, Other)
  Sender: FDA-Public Use
  Company Number: None

PATIENT
  Sex: Female
  Weight: 81 kg

DRUGS (1)
  1. CYTOTEC [Suspect]
     Active Substance: MISOPROSTOL
     Indication: UTERINE DILATION AND CURETTAGE
     Dates: start: 20170921, end: 20170922

REACTIONS (5)
  - Anaemia [None]
  - Dizziness [None]
  - Impaired work ability [None]
  - Nightmare [None]
  - Labour pain [None]

NARRATIVE: CASE EVENT DATE: 20170927
